FAERS Safety Report 12083420 (Version 1)
Quarter: 2016Q1

REPORT INFORMATION
  Report Type: Spontaneous
  Country: US (occurrence: None)
  Receive Date: 20160216
  Receipt Date: 20160216
  Transmission Date: 20160526
  Serious: No
  Sender: FDA-Public Use
  Company Number: None

PATIENT
  Age: 62 Year
  Sex: Female
  Weight: 86.18 kg

DRUGS (15)
  1. COPAXONE [Concomitant]
     Active Substance: GLATIRAMER ACETATE
  2. ASA [Concomitant]
     Active Substance: ASPIRIN
  3. HCTZ [Concomitant]
     Active Substance: HYDROCHLOROTHIAZIDE
  4. FLAXSEED [Concomitant]
     Active Substance: FLAX SEED
  5. TRAZODONE [Concomitant]
     Active Substance: TRAZODONE HYDROCHLORIDE
  6. VITAMIN D [Concomitant]
     Active Substance: CHOLECALCIFEROL
  7. COPAXONE [Suspect]
     Active Substance: GLATIRAMER ACETATE
     Indication: MULTIPLE SCLEROSIS
     Dosage: 40MG/ML 3 X A WEEK  3X WEEK GIVEN INTO/UNDER THE SKIN
     Route: 058
  8. NEURONTIN [Concomitant]
     Active Substance: GABAPENTIN
  9. FISH OIL [Concomitant]
     Active Substance: FISH OIL
  10. METAPROLOL [Concomitant]
     Active Substance: METOPROLOL
  11. ATIVAN [Concomitant]
     Active Substance: LORAZEPAM
  12. TURMERIC [Concomitant]
     Active Substance: TURMERIC
  13. ALEIVE [Concomitant]
  14. CPAP [Concomitant]
     Active Substance: DEVICE
  15. CYMBALTA [Concomitant]
     Active Substance: DULOXETINE HYDROCHLORIDE

REACTIONS (5)
  - Blood pressure increased [None]
  - Headache [None]
  - Dyskinesia [None]
  - Chills [None]
  - Feeling cold [None]

NARRATIVE: CASE EVENT DATE: 20160211
